FAERS Safety Report 23789913 (Version 3)
Quarter: 2025Q4

REPORT INFORMATION
  Report Type: Report from Study
  Country: CA (occurrence: CA)
  Receive Date: 20240426
  Receipt Date: 20251117
  Transmission Date: 20260118
  Serious: No
  Sender: SANDOZ
  Company Number: CA-SANDOZ-SDZ2024CA043268

PATIENT
  Sex: Male

DRUGS (1)
  1. ERELZI [Suspect]
     Active Substance: ETANERCEPT-SZZS
     Indication: Rheumatoid arthritis
     Dosage: 50MG;WEEKLY
     Route: 058
     Dates: start: 20231221

REACTIONS (2)
  - Injection site pain [Unknown]
  - Cough [Unknown]
